FAERS Safety Report 5280978-7 (Version None)
Quarter: 2007Q1

REPORT INFORMATION
  Report Type: 
  Country: None (occurrence: None)
  Receive Date: 20070329
  Receipt Date: 20070326
  Transmission Date: 20070707
  Serious: Yes (Death)
  Sender: FDA-Public Use
  Company Number: MX-ABBOTT-07P-107-0362771-00

PATIENT
  Sex: Male
  Weight: 40.5 kg

DRUGS (6)
  1. KALETRA [Suspect]
     Indication: HIV INFECTION
     Route: 048
     Dates: start: 20070201, end: 20070227
  2. LAMIVUDINE + ZIDOVUDINE [Concomitant]
     Indication: HIV INFECTION
     Route: 048
     Dates: start: 20070201, end: 20070213
  3. ABACAVIR [Concomitant]
     Indication: HIV INFECTION
     Route: 048
     Dates: start: 20070213, end: 20070227
  4. LAMIVUDINE [Concomitant]
     Indication: HIV INFECTION
     Route: 048
     Dates: start: 20070213, end: 20070227
  5. OMEPRAZOLE [Concomitant]
     Indication: PROPHYLAXIS AGAINST GASTROINTESTINAL ULCER
     Route: 042
     Dates: start: 20070212, end: 20070213
  6. BACTRIM [Concomitant]
     Indication: ANTIFUNGAL PROPHYLAXIS
     Route: 048
     Dates: start: 20070213, end: 20070217

REACTIONS (7)
  - ANAEMIA [None]
  - CHOLANGITIS [None]
  - DIARRHOEA [None]
  - MALAISE [None]
  - PERIANAL ABSCESS [None]
  - PYREXIA [None]
  - SEPTIC SHOCK [None]
